FAERS Safety Report 7699156 (Version 2)
Quarter: 2012Q4

REPORT INFORMATION
  Report Type: 
  Country: GB (occurrence: GB)
  Receive Date: 20101208
  Receipt Date: 20120913
  Transmission Date: 20130627
  Serious: Yes (Death, Hospitalization)
  Sender: FDA-Public Use
  Company Number: GB-RANBAXY-2010R1-39932

PATIENT
  Age: 46 Year
  Sex: Male

DRUGS (3)
  1. LAMIVUDINE/ZIDOVUDINE [Suspect]
     Indication: ANTIRETROVIRAL THERAPY
     Route: 065
  2. NEVIRAPINE [Suspect]
     Indication: ANTIRETROVIRAL THERAPY
     Route: 065
  3. ALCOHOL [Concomitant]
     Indication: PRODUCT USED FOR UNKNOWN INDICATION
     Route: 065

REACTIONS (3)
  - Lactic acidosis [Recovering/Resolving]
  - Diabetic hyperosmolar coma [Recovering/Resolving]
  - Renal failure acute [Recovering/Resolving]
